FAERS Safety Report 5153618-5 (Version None)
Quarter: 2006Q4

REPORT INFORMATION
  Report Type: 
  Country: None (occurrence: None)
  Receive Date: 20061113
  Receipt Date: 20061021
  Transmission Date: 20070319
  Serious: Yes (Other)
  Sender: FDA-Public Use
  Company Number: 2006134878

PATIENT
  Sex: Male

DRUGS (1)
  1. LYRICA [Suspect]
     Indication: POLYNEUROPATHY
     Dosage: 450 MG (1 D)
     Dates: start: 20060901

REACTIONS (18)
  - CEREBELLAR ATAXIA [None]
  - CONDITION AGGRAVATED [None]
  - COORDINATION ABNORMAL [None]
  - DIARRHOEA [None]
  - DRUG WITHDRAWAL SYNDROME [None]
  - DRY MOUTH [None]
  - DYSAESTHESIA [None]
  - DYSARTHRIA [None]
  - DYSGRAPHIA [None]
  - DYSURIA [None]
  - FEELING DRUNK [None]
  - INSOMNIA [None]
  - MYALGIA [None]
  - NAUSEA [None]
  - NERVOUSNESS [None]
  - POLLAKIURIA [None]
  - POLYNEUROPATHY [None]
  - URINARY TRACT DISORDER [None]
